FAERS Safety Report 9940893 (Version 1)
Quarter: 2014Q1

REPORT INFORMATION
  Report Type: Spontaneous
  Country: FR (occurrence: FR)
  Receive Date: 20140303
  Receipt Date: 20140303
  Transmission Date: 20141002
  Serious: Yes (Hospitalization)
  Sender: FDA-Public Use
  Company Number: FR-PFIZER INC-2014057803

PATIENT
  Age: 74 Year
  Sex: Female

DRUGS (12)
  1. CELEBREX [Suspect]
     Indication: OSTEOARTHRITIS
     Dosage: 1 DF (100 MG) ONCE DAILY IN THE MORNING
     Route: 048
     Dates: end: 20131212
  2. ALTEISDUO [Suspect]
     Indication: HYPERTENSION
     Dosage: 1 DF([OLMESARTAN 20 MG]/ [HYDROCHLOROTHIAZIDE12.5 MG]) ONCE DAILY IN THE MORNING
     Route: 048
     Dates: end: 20131212
  3. PREDNISONE [Concomitant]
     Dosage: 0.5 DF (10 MG) ONCE DAILY IN THE MORNING
     Route: 048
     Dates: end: 20131212
  4. ATENOLOL [Concomitant]
     Dosage: 1 DF (50 MG ONCE DAILY) IN THE MORNING
     Route: 048
     Dates: end: 20131212
  5. PARACETAMOL [Concomitant]
     Dosage: 1000 MG, AS NEEDED
     Route: 065
  6. PIASCLEDINE [Concomitant]
     Route: 048
  7. ZOLTUM [Concomitant]
     Dosage: 1 DF IN THE MORNING (20 MG ONCE DAILY)
     Route: 048
  8. ZOCOR [Concomitant]
     Dosage: 1 DF IN THE EVENING (20 MG ONCE DAILY)
     Route: 048
  9. MOVICOL [Concomitant]
     Dosage: 2 DFS ONCE DAILY IN THE MORNING
     Route: 048
  10. GAVISCON [Concomitant]
     Dosage: 1 DF (THRICE DAILY) MORNING, MIDDAY AND EVENING
     Route: 048
  11. ACTISKENAN [Concomitant]
     Dosage: 5 MG, UNK
     Route: 048
     Dates: start: 201309
  12. PRIMPERAN [Concomitant]
     Dosage: 1 DF MORNING AND EVENING (TWICE DAILY) IF NEEDED
     Route: 048

REACTIONS (6)
  - Renal failure acute [Recovered/Resolved]
  - Condition aggravated [Recovered/Resolved]
  - Gastroenteritis viral [Unknown]
  - Osteoarthritis [Unknown]
  - Atrial fibrillation [Unknown]
  - Renal failure [Recovered/Resolved]
